FAERS Safety Report 7270948-1 (Version None)
Quarter: 2011Q1

REPORT INFORMATION
  Report Type: 
  Country: None (occurrence: None)
  Receive Date: 20110202
  Receipt Date: 20110131
  Transmission Date: 20110831
  Serious: Yes (Death, Hospitalization)
  Sender: FDA-Public Use
  Company Number: BR-ABBOTT-10P-020-0672594-00

PATIENT
  Sex: Female
  Weight: 88 kg

DRUGS (10)
  1. OMEPRAZOLE [Concomitant]
     Indication: GASTRIC DISORDER
     Route: 048
  2. TRAMADOL HCL [Concomitant]
     Indication: PAIN
     Route: 048
  3. SULFASALAZINE [Concomitant]
     Indication: PROPHYLAXIS
  4. MODURETIC 5-50 [Concomitant]
     Indication: HYPERTENSION
     Route: 048
  5. UNKNOWN MEDICATIONS [Concomitant]
     Indication: PRODUCT USED FOR UNKNOWN INDICATION
  6. HUMIRA [Suspect]
     Indication: RHEUMATOID ARTHRITIS
     Route: 058
     Dates: start: 20060630
  7. PREDNISONE [Concomitant]
     Indication: RHEUMATOID ARTHRITIS
     Route: 048
     Dates: start: 20000101
  8. LASIX [Concomitant]
     Indication: HYPERTENSION
     Route: 048
  9. SULFASALAZINE [Concomitant]
     Indication: GOUT
     Route: 048
  10. DIAZEPAM [Concomitant]
     Indication: SLEEP DISORDER THERAPY
     Route: 048

REACTIONS (9)
  - DIARRHOEA [None]
  - PULMONARY OEDEMA [None]
  - HYPERTENSION [None]
  - ARTERIAL OCCLUSIVE DISEASE [None]
  - MALAISE [None]
  - RENAL FAILURE [None]
  - HEART RATE INCREASED [None]
  - BLOOD CHOLESTEROL INCREASED [None]
  - CONGENITAL CYSTIC KIDNEY DISEASE [None]
